FAERS Safety Report 11665469 (Version 1)
Quarter: 2015Q4

REPORT INFORMATION
  Report Type: Spontaneous
  Country: US (occurrence: None)
  Receive Date: 20151026
  Receipt Date: 20151026
  Transmission Date: 20160304
  Serious: No
  Sender: FDA-Public Use
  Company Number: None

PATIENT
  Age: 80 Year
  Sex: Male

DRUGS (5)
  1. LIDOCAINE PATCH 5% WATSON [Suspect]
     Active Substance: LIDOCAINE
     Indication: PAIN
     Dosage: 1/4 PATCH   APPLIED AS MEDICATED PATCH TO SKIN
     Dates: start: 20151001, end: 20151023
  2. IRON [Concomitant]
     Active Substance: IRON
  3. ATENOLOL. [Concomitant]
     Active Substance: ATENOLOL
  4. DIAZEPAM. [Concomitant]
     Active Substance: DIAZEPAM
  5. CALCIUM CITRATE [Concomitant]
     Active Substance: CALCIUM CITRATE

REACTIONS (3)
  - Product quality issue [None]
  - Product substitution issue [None]
  - Drug effect decreased [None]

NARRATIVE: CASE EVENT DATE: 20150801
